FAERS Safety Report 15544130 (Version 2)
Quarter: 2018Q4

REPORT INFORMATION
  Report Type: Spontaneous
  Country: US (occurrence: US)
  Receive Date: 20181024
  Receipt Date: 20181126
  Transmission Date: 20190205
  Serious: Yes (Life-Threatening, Hospitalization)
  Sender: FDA-Public Use
  Company Number: US-TEVA-2018-US-966583

PATIENT
  Age: 5 Year
  Sex: Male

DRUGS (1)
  1. BUPRENORPHINE. [Suspect]
     Active Substance: BUPRENORPHINE
     Indication: ACCIDENTAL OVERDOSE
     Dosage: THE NUMBER OF PILLS INGESTED WAS UNCERTAIN, BUT THERE WAS REPORTEDLY ONE 8MG TABLET MISSING FROM ...
     Route: 048

REACTIONS (9)
  - Brain herniation [Unknown]
  - Accidental exposure to product by child [Unknown]
  - Urinary incontinence [Unknown]
  - Accidental overdose [Unknown]
  - Cerebral haemorrhage [Unknown]
  - Encephalitis [Unknown]
  - Hypopnoea [Unknown]
  - Necrosis [Unknown]
  - Cognitive disorder [Unknown]
